FAERS Safety Report 6010287-X (Version None)
Quarter: 2008Q4

REPORT INFORMATION
  Report Type: 
  Country: None (occurrence: None)
  Receive Date: 20081218
  Receipt Date: 20080609
  Transmission Date: 20090506
  Serious: Yes (Other)
  Sender: FDA-Public Use
  Company Number: A0724864A

PATIENT
  Age: 68 Year
  Sex: Male

DRUGS (4)
  1. FLONASE [Suspect]
     Dosage: 4SPR TWICE PER DAY
     Route: 045
     Dates: start: 20030101
  2. FLUTICASONE PROPIONATE [Suspect]
     Route: 045
     Dates: start: 20060101
  3. BLOOD PRESSURE MEDICATION [Concomitant]
  4. VALIUM [Concomitant]

REACTIONS (4)
  - CATARACT [None]
  - CONJUNCTIVITIS [None]
  - DRUG INEFFECTIVE [None]
  - INTRAOCULAR PRESSURE INCREASED [None]
